FAERS Safety Report 14272359 (Version 1)
Quarter: 2017Q4

REPORT INFORMATION
  Report Type: Spontaneous
  Country: TH (occurrence: TH)
  Receive Date: 20171212
  Receipt Date: 20171212
  Transmission Date: 20180321
  Serious: Yes (Other)
  Sender: FDA-Public Use
  Company Number: PHHY2017TH177401

PATIENT
  Age: 64 Year
  Sex: Female

DRUGS (1)
  1. LETROZOLE. [Suspect]
     Active Substance: LETROZOLE
     Indication: BREAST CANCER
     Route: 065

REACTIONS (6)
  - Spinal cord compression [Unknown]
  - Back pain [Unknown]
  - Compression fracture [Unknown]
  - Asthenia [Unknown]
  - Metastasis [Unknown]
  - Metastases to bone [Unknown]

NARRATIVE: CASE EVENT DATE: 201112
